FAERS Safety Report 4479024-4 (Version None)
Quarter: 2004Q4

REPORT INFORMATION
  Report Type: 
  Country: None (occurrence: None)
  Receive Date: 20040923
  Receipt Date: 20040727
  Transmission Date: 20050328
  Serious: No
  Sender: FDA-Public Use
  Company Number: 208091

PATIENT
  Age: 38 Year
  Sex: Female

DRUGS (2)
  1. AVASTIN [Suspect]
     Indication: COLORECTAL CANCER METASTATIC
     Dosage: INTRAVENOUS
     Route: 042
  2. IRINOTECAN (IRINOTECAN) [Suspect]
     Indication: COLORECTAL CANCER METASTATIC
     Dosage: INTRAVENOUS
     Route: 042

REACTIONS (2)
  - FEELING HOT [None]
  - HEART RATE INCREASED [None]
